FAERS Safety Report 23840197 (Version 1)
Quarter: 2024Q2

REPORT INFORMATION
  Report Type: Spontaneous
  Country: US (occurrence: US)
  Receive Date: 20240510
  Receipt Date: 20240510
  Transmission Date: 20240716
  Serious: No
  Sender: FDA-Public Use
  Company Number: US-AMGEN-USASP2024090127

PATIENT
  Sex: Male

DRUGS (3)
  1. AVSOLA [Suspect]
     Active Substance: INFLIXIMAB-AXXQ
     Indication: Crohn^s disease
     Dosage: 100 MILLIGRAM, Q4WK
     Route: 042
  2. AVSOLA [Suspect]
     Active Substance: INFLIXIMAB-AXXQ
     Dosage: 100 MILLIGRAM, Q4WK
     Route: 042
  3. AVSOLA [Suspect]
     Active Substance: INFLIXIMAB-AXXQ
     Dosage: 100 UNK
     Route: 042

REACTIONS (1)
  - Intercepted product preparation error [Unknown]

NARRATIVE: CASE EVENT DATE: 20240506
